FAERS Safety Report 10058325 (Version 2)
Quarter: 2014Q2

REPORT INFORMATION
  Report Type: Spontaneous
  Country: US (occurrence: US)
  Receive Date: 20140404
  Receipt Date: 20140506
  Transmission Date: 20141212
  Serious: Yes (Other)
  Sender: FDA-Public Use
  Company Number: US-009507513-1403USA014596

PATIENT
  Age: 52 Year
  Sex: Female
  Weight: 74.29 kg

DRUGS (10)
  1. EMEND FOR INJECTION [Suspect]
     Indication: BREAST CANCER
     Dosage: 150 MG, UNK CYCLE 4
     Route: 042
     Dates: start: 20140306, end: 20140306
  2. EMEND FOR INJECTION [Suspect]
     Indication: NAUSEA
  3. TAXOTERE [Concomitant]
     Indication: BREAST CANCER
  4. CYTOXAN [Concomitant]
     Indication: BREAST CANCER
     Dosage: UNK
     Route: 042
  5. ATENOLOL (+) CHLORTHALIDONE [Concomitant]
     Dosage: 1 DF, QD
     Route: 048
     Dates: start: 20140103
  6. CELEXA [Concomitant]
     Dosage: 1 DF, QD
     Route: 048
     Dates: start: 20140103
  7. HYDRALAZINE [Concomitant]
     Dosage: 1 DF, BID
     Route: 048
     Dates: start: 20140103
  8. NYSTATIN [Concomitant]
     Dosage: 100,000 UNIT/ML, 10 ML BY MOUTH; SWISH + SPIT
     Dates: start: 20140123
  9. PERCOCET [Concomitant]
     Indication: PAIN
     Dosage: 1 DF, Q6H (PRN)
     Route: 048
     Dates: start: 20140320
  10. POTASSIUM CHLORIDE [Concomitant]
     Dosage: 2 PILLS BY MOUTH TWICE DAILY (WITH MEALS) FOR 3 DAYS; THEN 1 PILL TWICE DAILY THEREAFTER
     Route: 048
     Dates: start: 20140403

REACTIONS (7)
  - Stevens-Johnson syndrome [Recovering/Resolving]
  - Neuropathy peripheral [Not Recovered/Not Resolved]
  - Sleep disorder [Not Recovered/Not Resolved]
  - Hypokalaemia [Not Recovered/Not Resolved]
  - Pemphigus [Not Recovered/Not Resolved]
  - Hyperhidrosis [Not Recovered/Not Resolved]
  - Dyspnoea [Recovered/Resolved]
